FAERS Safety Report 19930518 (Version 1)
Quarter: 2021Q4

REPORT INFORMATION
  Report Type: Spontaneous
  Country: GB (occurrence: GB)
  Receive Date: 20211008
  Receipt Date: 20211008
  Transmission Date: 20220303
  Serious: Yes (Other)
  Sender: FDA-Public Use
  Company Number: GB-MHRA-EYC 00261621

PATIENT
  Age: 59 Year
  Sex: Female
  Weight: 94.34 kg

DRUGS (1)
  1. ONDANSETRON [Suspect]
     Active Substance: ONDANSETRON
     Indication: Ill-defined disorder
     Dosage: 16 MILLIGRAM
     Route: 048
     Dates: start: 20210923, end: 20210923

REACTIONS (1)
  - Adverse drug reaction [Not Recovered/Not Resolved]

NARRATIVE: CASE EVENT DATE: 20210923
